FAERS Safety Report 19757130 (Version 1)
Quarter: 2021Q3

REPORT INFORMATION
  Report Type: Spontaneous
  Country: US (occurrence: US)
  Receive Date: 20210827
  Receipt Date: 20210827
  Transmission Date: 20211014
  Serious: No
  Sender: FDA-Public Use
  Company Number: US-ASTRAZENECA-2021A692575

PATIENT
  Sex: Female
  Weight: 63.5 kg

DRUGS (4)
  1. LEVOFLOXACIN. [Concomitant]
     Active Substance: LEVOFLOXACIN
  2. NEXIUM [Suspect]
     Active Substance: ESOMEPRAZOLE MAGNESIUM
     Indication: PRODUCT USED FOR UNKNOWN INDICATION
     Dosage: 40.0MG UNKNOWN
     Route: 048
  3. NEXIUM [Suspect]
     Active Substance: ESOMEPRAZOLE MAGNESIUM
     Indication: ILL-DEFINED DISORDER
     Route: 048
  4. NEXIUM [Suspect]
     Active Substance: ESOMEPRAZOLE MAGNESIUM
     Indication: ILL-DEFINED DISORDER
     Route: 048

REACTIONS (8)
  - Weight decreased [Unknown]
  - Multiple allergies [Unknown]
  - Drug intolerance [Not Recovered/Not Resolved]
  - Multiple sclerosis [Unknown]
  - Decreased appetite [Unknown]
  - Hiatus hernia [Not Recovered/Not Resolved]
  - Chest discomfort [Unknown]
  - Aspiration [Unknown]
